FAERS Safety Report 9272659 (Version 1)
Quarter: 2013Q2

REPORT INFORMATION
  Report Type: Spontaneous
  Country: TR (occurrence: TR)
  Receive Date: 20130506
  Receipt Date: 20130506
  Transmission Date: 20140414
  Serious: Yes (Death)
  Sender: FDA-Public Use
  Company Number: TR-BIOMARINAP-TR-2013-100726

PATIENT
  Age: 6 Year
  Sex: Female
  Weight: 22 kg

DRUGS (1)
  1. NAGLAZYME [Suspect]
     Indication: MUCOPOLYSACCHARIDOSIS VI
     Dosage: 22 MG, QW
     Route: 041

REACTIONS (3)
  - Lung infection [Fatal]
  - Cardiac failure [Unknown]
  - Cardio-respiratory arrest [Unknown]
